FAERS Safety Report 7595415-7 (Version None)
Quarter: 2011Q3

REPORT INFORMATION
  Report Type: 
  Country: None (occurrence: None)
  Receive Date: 20110707
  Receipt Date: 20110627
  Transmission Date: 20111222
  Serious: Yes (Life-Threatening, Hospitalization)
  Sender: FDA-Public Use
  Company Number: FR-ROCHE-760802

PATIENT
  Sex: Female
  Weight: 65 kg

DRUGS (1)
  1. TOCILIZUMAB [Suspect]
     Indication: RHEUMATOID ARTHRITIS
     Dosage: FREQUENCY: CYCLE.FORM: INFUSION
     Route: 042
     Dates: start: 20100730

REACTIONS (2)
  - PHLEBITIS [None]
  - PULMONARY EMBOLISM [None]
